FAERS Safety Report 13407853 (Version 6)
Quarter: 2022Q2

REPORT INFORMATION
  Report Type: Report from Study
  Country: AR (occurrence: AR)
  Receive Date: 20170406
  Receipt Date: 20220531
  Transmission Date: 20220721
  Serious: Yes (Hospitalization, Other)
  Sender: FDA-Public Use
  Company Number: AR-BRISTOL-MYERS SQUIBB COMPANY-BMS-2017-028494

PATIENT
  Age: 58 Year
  Sex: Male
  Weight: 83 kg

DRUGS (6)
  1. IPILIMUMAB [Suspect]
     Active Substance: IPILIMUMAB
     Indication: Small cell lung cancer
     Dosage: DAY 1, 15, 22, 29
     Route: 042
     Dates: start: 20161230, end: 20170330
  2. BISOPROLOL [Concomitant]
     Active Substance: BISOPROLOL
     Indication: Product used for unknown indication
     Dosage: 5 MG, UNK
     Route: 065
     Dates: start: 201606
  3. CLONAZEPAM [Concomitant]
     Active Substance: CLONAZEPAM
     Indication: Product used for unknown indication
     Dosage: 0.5 MG, UNK
     Route: 065
     Dates: start: 201611
  4. ENALAPRIL [Concomitant]
     Active Substance: ENALAPRIL
     Indication: Product used for unknown indication
     Dosage: 5 MG, UNK
     Route: 065
     Dates: start: 201606
  5. ENOXAPARIN [Concomitant]
     Active Substance: ENOXAPARIN
     Indication: Product used for unknown indication
     Dosage: 160 MG, UNK
     Route: 065
     Dates: start: 201608
  6. ERYTHROPOIETIN [Concomitant]
     Active Substance: ERYTHROPOIETIN
     Indication: Product used for unknown indication
     Dosage: 4000 ENZYME UNIT PER GRAM 4000 UIU/ML, UNK
     Route: 065
     Dates: start: 20170220

REACTIONS (1)
  - Renal failure [Recovered/Resolved]

NARRATIVE: CASE EVENT DATE: 20170330
